FAERS Safety Report 10157055 (Version 1)
Quarter: 2014Q2

REPORT INFORMATION
  Report Type: Spontaneous
  Country: US (occurrence: None)
  Receive Date: 20140506
  Receipt Date: 20140506
  Transmission Date: 20141212
  Serious: Yes (Life-Threatening, Hospitalization, Disabling)
  Sender: FDA-Public Use
  Company Number: None

PATIENT
  Sex: Male

DRUGS (1)
  1. ACTOS [Suspect]
     Indication: TYPE 2 DIABETES MELLITUS
     Dosage: 2002/2004/, 2010/2011 30MG, 1, A DAY, BY MOUTH
     Route: 048

REACTIONS (9)
  - Prostate cancer [None]
  - Colonic fistula [None]
  - Vesical fistula [None]
  - Hypertension [None]
  - Colon cancer [None]
  - Cerebral atrophy [None]
  - Transient ischaemic attack [None]
  - Central nervous system lesion [None]
  - Renal disorder [None]
